FAERS Safety Report 12598375 (Version 3)
Quarter: 2016Q4

REPORT INFORMATION
  Report Type: Report from Study
  Country: None (occurrence: DE)
  Receive Date: 20160726
  Receipt Date: 20161115
  Transmission Date: 20170207
  Serious: Yes (Hospitalization, Other)
  Sender: FDA-Public Use
  Company Number: DE-ABBVIE-16K-062-1682435-00

PATIENT
  Age: 29 Year
  Sex: Female

DRUGS (5)
  1. CALCILAC [Concomitant]
     Active Substance: CALCIUM CARBONATE
     Indication: PRODUCT USED FOR UNKNOWN INDICATION
  2. AZATHIOPRIN [Concomitant]
     Active Substance: AZATHIOPRINE
     Indication: PRODUCT USED FOR UNKNOWN INDICATION
  3. VITAMIN B12 [Concomitant]
     Active Substance: CYANOCOBALAMIN
     Indication: PRODUCT USED FOR UNKNOWN INDICATION
  4. HUMIRA [Suspect]
     Active Substance: ADALIMUMAB
     Indication: CROHN^S DISEASE
     Route: 058
     Dates: start: 20130215, end: 201609
  5. VITAMIN D3 [Concomitant]
     Active Substance: CHOLECALCIFEROL
     Indication: PRODUCT USED FOR UNKNOWN INDICATION

REACTIONS (5)
  - Post procedural complication [Recovering/Resolving]
  - Impaired healing [Recovering/Resolving]
  - Purulence [Recovering/Resolving]
  - Gastrointestinal fistula [Recovering/Resolving]
  - Procedural pain [Recovering/Resolving]

NARRATIVE: CASE EVENT DATE: 201605
